FAERS Safety Report 7045654-9 (Version None)
Quarter: 2010Q4

REPORT INFORMATION
  Report Type: 
  Country: None (occurrence: None)
  Receive Date: 20101014
  Receipt Date: 20100805
  Transmission Date: 20110411
  Serious: No
  Sender: FDA-Public Use
  Company Number: US-ASTRAZENECA-2010SE36725

PATIENT
  Sex: Female

DRUGS (5)
  1. SYMBICORT [Suspect]
     Dosage: 160/4.5 1PUFF
     Route: 055
  2. SYMBICORT [Suspect]
     Dosage: 160/4.5 1PUFF
     Route: 055
  3. PROZAC [Concomitant]
  4. VISTERIL [Concomitant]
  5. HYDROCODONE [Concomitant]

REACTIONS (2)
  - DYSPNOEA [None]
  - INCORRECT DOSE ADMINISTERED [None]
